FAERS Safety Report 9372860 (Version 1)
Quarter: 2013Q2

REPORT INFORMATION
  Report Type: Spontaneous
  Country: US (occurrence: US)
  Receive Date: 20130627
  Receipt Date: 20130627
  Transmission Date: 20140414
  Serious: No
  Sender: FDA-Public Use
  Company Number: US-B.I. PHARMACEUTICALS,INC./RIDGEFIELD-2013-BI-17767BP

PATIENT
  Sex: Female

DRUGS (5)
  1. SPIRIVA [Suspect]
     Indication: CHRONIC OBSTRUCTIVE PULMONARY DISEASE
     Dosage: 18 MCG
     Route: 055
     Dates: start: 2010
  2. GABAPENTIN [Concomitant]
     Indication: NEURALGIA
  3. WARFARIN [Concomitant]
  4. ALDERONATE SODIUM [Concomitant]
     Indication: OSTEOPOROSIS
  5. ENDOCET [Concomitant]
     Indication: NEURALGIA

REACTIONS (1)
  - Pulmonary fibrosis [Not Recovered/Not Resolved]
